FAERS Safety Report 8593415-1 (Version None)
Quarter: 2012Q3

REPORT INFORMATION
  Report Type: 
  Country: None (occurrence: None)
  Receive Date: 20120814
  Receipt Date: 20120810
  Transmission Date: 20120928
  Serious: No
  Sender: FDA-Public Use
  Company Number: US-TEVA-353609USA

PATIENT
  Sex: Female
  Weight: 68.1 kg

DRUGS (3)
  1. DIETARY SUPPLEMENT [Concomitant]
     Indication: SUPPLEMENTATION THERAPY
  2. PLAN B ONE-STEP [Suspect]
     Indication: POST COITAL CONTRACEPTION
     Dosage: 1.5 MILLIGRAM DAILY;
     Route: 048
     Dates: start: 20120710, end: 20120710
  3. PLAN B ONE-STEP [Suspect]
     Dosage: 1.5 MILLIGRAM DAILY;
     Route: 048
     Dates: start: 20120729, end: 20120729

REACTIONS (5)
  - BREAST DISCOMFORT [None]
  - BREAST ENLARGEMENT [None]
  - MENSTRUATION IRREGULAR [None]
  - BREAST PAIN [None]
  - NAUSEA [None]
